FAERS Safety Report 5972057-8 (Version None)
Quarter: 2008Q4

REPORT INFORMATION
  Report Type: 
  Country: None (occurrence: None)
  Receive Date: 20081125
  Receipt Date: 20081116
  Transmission Date: 20090506
  Serious: Yes (Other)
  Sender: FDA-Public Use
  Company Number: 2008SP023374

PATIENT
  Sex: Female

DRUGS (2)
  1. MIRALAX [Suspect]
     Dosage: PO
     Route: 048
     Dates: start: 20081116
  2. NITROGLYCERIN [Concomitant]

REACTIONS (1)
  - PALPITATIONS [None]
